FAERS Safety Report 24951305 (Version 1)
Quarter: 2025Q1

REPORT INFORMATION
  Report Type: Spontaneous
  Country: US (occurrence: US)
  Receive Date: 20250210
  Receipt Date: 20250210
  Transmission Date: 20250408
  Serious: No
  Sender: LANNETT
  Company Number: LANN2400372

PATIENT
  Age: 77 Year
  Sex: Female

DRUGS (1)
  1. PROPRANOLOL HYDROCHLORIDE [Suspect]
     Active Substance: PROPRANOLOL HYDROCHLORIDE
     Indication: Product used for unknown indication
     Route: 065

REACTIONS (4)
  - Fat tissue increased [Unknown]
  - Weight increased [Unknown]
  - Swelling [Unknown]
  - Dyspepsia [Unknown]
